FAERS Safety Report 6525491-1 (Version None)
Quarter: 2010Q1

REPORT INFORMATION
  Report Type: 
  Country: None (occurrence: None)
  Receive Date: 20100104
  Receipt Date: 20091221
  Transmission Date: 20100710
  Serious: Yes (Hospitalization, Disabling, Other)
  Sender: FDA-Public Use
  Company Number: FR-PFIZER INC-2009312978

PATIENT
  Age: 45 Year
  Sex: Female

DRUGS (5)
  1. ZOLOFT [Suspect]
     Dosage: UNK
     Dates: start: 20040101
  2. EFFEXOR [Suspect]
     Indication: DEPRESSION
     Dosage: 75MG DAILY DOSE
     Route: 048
     Dates: start: 20070901, end: 20080701
  3. EFFEXOR [Suspect]
     Indication: PHOBIA OF FLYING
     Dosage: 37.5 MG, 1X/DAY
     Route: 048
     Dates: start: 20080701, end: 20080701
  4. DESOGESTREL AND ETHINYL ESTRADIOL [Suspect]
     Indication: CONTRACEPTION
     Dosage: UNK
     Dates: end: 20090201
  5. XANAX [Concomitant]
     Dosage: 0.75 MG, 1X/DAY

REACTIONS (13)
  - ACCOMMODATION DISORDER [None]
  - CEREBRAL VENOUS THROMBOSIS [None]
  - DRUG WITHDRAWAL SYNDROME [None]
  - DURAL FISTULA [None]
  - FATIGUE [None]
  - INCREASED APPETITE [None]
  - INTRACRANIAL PRESSURE INCREASED [None]
  - NAUSEA [None]
  - PAPILLOEDEMA [None]
  - THROMBOSIS [None]
  - TINNITUS [None]
  - VISUAL ACUITY REDUCED [None]
  - WEIGHT INCREASED [None]
